FAERS Safety Report 17588637 (Version 2)
Quarter: 2023Q4

REPORT INFORMATION
  Report Type: Report from Study
  Country: US (occurrence: US)
  Receive Date: 20200326
  Receipt Date: 20231019
  Transmission Date: 20240109
  Serious: Yes (Hospitalization, Other)
  Sender: FDA-Public Use
  Company Number: US-ABBVIE-20K-163-3332827-00

PATIENT
  Age: 28 Year
  Sex: Male

DRUGS (14)
  1. HUMIRA [Suspect]
     Active Substance: ADALIMUMAB
     Indication: Colitis ulcerative
     Route: 058
     Dates: start: 20181218, end: 201905
  2. FERROUS SULFATE [Concomitant]
     Active Substance: FERROUS SULFATE
     Indication: Anaemia
     Dosage: TIME INTERVAL: AS NECESSARY
     Route: 048
     Dates: start: 201805
  3. IBUPROFEN [Concomitant]
     Active Substance: IBUPROFEN
     Indication: Neck pain
     Dosage: TIME INTERVAL: AS NECESSARY
     Route: 048
     Dates: start: 20180829
  4. ENTYVIO [Concomitant]
     Active Substance: VEDOLIZUMAB
     Indication: Colitis ulcerative
     Route: 042
     Dates: start: 20190530
  5. OXYCODONE [Concomitant]
     Active Substance: OXYCODONE
     Indication: Pain
     Dosage: TIME INTERVAL: AS NECESSARY: 5-10 MG
     Route: 048
     Dates: start: 20190830, end: 20190906
  6. OXYCODONE [Concomitant]
     Active Substance: OXYCODONE
     Indication: Pain
     Dosage: TIME INTERVAL: AS NECESSARY: 5-10 MG
     Route: 048
     Dates: start: 20191024, end: 20191026
  7. NEURONTIN [Concomitant]
     Active Substance: GABAPENTIN
     Indication: Pain
     Route: 048
     Dates: start: 20190830, end: 20190906
  8. NEURONTIN [Concomitant]
     Active Substance: GABAPENTIN
     Indication: Pain
     Route: 048
     Dates: start: 20191024, end: 20191026
  9. HYDROMORPHONE [Concomitant]
     Active Substance: HYDROMORPHONE
     Indication: Pain
     Dosage: CONTINUOUS
     Route: 042
     Dates: start: 20190829, end: 20190906
  10. HYDROMORPHONE [Concomitant]
     Active Substance: HYDROMORPHONE
     Indication: Pain
     Dosage: 0.2-0.4 MG
     Route: 042
     Dates: start: 20190910, end: 20190913
  11. MORPHINE [Concomitant]
     Active Substance: MORPHINE
     Indication: Pain
     Dosage: TIME INTERVAL: AS NECESSARY: 04-08 MG
     Route: 048
     Dates: start: 20190910, end: 20190910
  12. GABAPENTIN [Concomitant]
     Active Substance: GABAPENTIN
     Indication: Pain
     Route: 048
     Dates: start: 20190910, end: 20190913
  13. DILAUDID [Concomitant]
     Active Substance: HYDROMORPHONE HYDROCHLORIDE
     Indication: Pain
     Dosage: TIME INTERVAL: AS NECESSARY: 02-0.6 MG
     Route: 042
     Dates: start: 20191024, end: 20191024
  14. TORADOL [Concomitant]
     Active Substance: KETOROLAC TROMETHAMINE
     Indication: Pain
     Route: 042
     Dates: start: 20191024, end: 20191025

REACTIONS (2)
  - Small intestinal obstruction [Recovered/Resolved]
  - Colitis ulcerative [Recovered/Resolved]

NARRATIVE: CASE EVENT DATE: 20190829
